FAERS Safety Report 6437753-7 (Version None)
Quarter: 2009Q4

REPORT INFORMATION
  Report Type: 
  Country: None (occurrence: None)
  Receive Date: 20091109
  Receipt Date: 20091022
  Transmission Date: 20100525
  Serious: Yes (Other)
  Sender: FDA-Public Use
  Company Number: 07-AUR-01561

PATIENT
  Age: 56 Year
  Sex: Female
  Weight: 71 kg

DRUGS (8)
  1. CITALOPRAM HYDROBROMIDE [Suspect]
     Indication: DEPRESSED MOOD
     Dosage: 20MG - DAILY - ORAL
     Route: 048
     Dates: start: 20070727
  2. GABAPENTIN [Suspect]
     Indication: NEURALGIA
     Dosage: 2700MG
     Dates: start: 20070727, end: 20071104
  3. LYRICA [Suspect]
     Indication: NEURALGIA
     Dosage: 375MG - DAILY
     Dates: start: 20071104
  4. BISACODYL [Concomitant]
  5. COD LIVER OIL [Concomitant]
  6. GLUCOSAMINE [Concomitant]
  7. LIDOCAINE TRANSDERMAL [Concomitant]
  8. VITAMIN TAB [Concomitant]

REACTIONS (11)
  - AMNESIA [None]
  - ANORGASMIA [None]
  - COGNITIVE DISORDER [None]
  - CONSTIPATION [None]
  - DISTURBANCE IN ATTENTION [None]
  - OEDEMA [None]
  - PAIN [None]
  - POLLAKIURIA [None]
  - QUALITY OF LIFE DECREASED [None]
  - SENSATION OF HEAVINESS [None]
  - WEIGHT INCREASED [None]
